FAERS Safety Report 15341974 (Version 1)
Quarter: 2018Q3

REPORT INFORMATION
  Report Type: Spontaneous
  Country: US (occurrence: US)
  Receive Date: 20180828
  Receipt Date: 20180828
  Transmission Date: 20181010
  Serious: Yes (Other)
  Sender: FDA-Public Use
  Company Number: None

PATIENT
  Age: 80 Year
  Sex: Female
  Weight: 63.9 kg

DRUGS (15)
  1. REFRESH [Concomitant]
     Active Substance: UNSPECIFIED INGREDIENT
  2. CITRICAL +D3 [Concomitant]
  3. OMEPRAZOLE. [Concomitant]
     Active Substance: OMEPRAZOLE
  4. FOLIC ACID. [Concomitant]
     Active Substance: FOLIC ACID
  5. WELCHOL [Concomitant]
     Active Substance: COLESEVELAM HYDROCHLORIDE
  6. NINLARO [Suspect]
     Active Substance: IXAZOMIB CITRATE
     Dosage: ?          OTHER FREQUENCY:1 CAPSULE QW;?
     Route: 048
  7. TOPROL XL [Concomitant]
     Active Substance: METOPROLOL SUCCINATE
  8. GABAPENTIN. [Concomitant]
     Active Substance: GABAPENTIN
  9. ZOCOR [Concomitant]
     Active Substance: SIMVASTATIN
  10. XANAX [Concomitant]
     Active Substance: ALPRAZOLAM
  11. ASPIRIN. [Concomitant]
     Active Substance: ASPIRIN
  12. PRECOSE [Concomitant]
     Active Substance: ACARBOSE
  13. ACYCLOVIR. [Concomitant]
     Active Substance: ACYCLOVIR
  14. DEXAMETHASONE. [Concomitant]
     Active Substance: DEXAMETHASONE
  15. LISINOPRIL. [Concomitant]
     Active Substance: LISINOPRIL

REACTIONS (1)
  - Diarrhoea [None]

NARRATIVE: CASE EVENT DATE: 20180828
